FAERS Safety Report 8499534-2 (Version None)
Quarter: 2012Q3

REPORT INFORMATION
  Report Type: 
  Country: None (occurrence: None)
  Receive Date: 20120710
  Receipt Date: 20120702
  Transmission Date: 20120928
  Serious: Yes (Other)
  Sender: FDA-Public Use
  Company Number: JP-SANOFI-AVENTIS-2012SA046891

PATIENT
  Age: 73 Year
  Sex: Male
  Weight: 57 kg

DRUGS (5)
  1. FLUOROURACIL [Concomitant]
     Route: 040
     Dates: start: 20111222, end: 20111222
  2. FLUOROURACIL [Concomitant]
     Dosage: DOSE: 3792 MG/BODY/D 1-2 (2400 MG/M^2/D1-2) AS CONTINUOUS INFUSION
     Route: 041
     Dates: start: 20111222, end: 20111222
  3. LEUCOVORIN CALCIUM [Concomitant]
     Dates: start: 20111222, end: 20111222
  4. ELOXATIN [Suspect]
     Indication: COLON CANCER
     Route: 041
     Dates: start: 20111222, end: 20111222
  5. DEXAMETHASONE [Concomitant]
     Dates: start: 20111222, end: 20111222

REACTIONS (2)
  - HICCUPS [None]
  - TRANSIENT ISCHAEMIC ATTACK [None]
